FAERS Safety Report 10963405 (Version 3)
Quarter: 2015Q3

REPORT INFORMATION
  Report Type: Spontaneous
  Country: US (occurrence: None)
  Receive Date: 20150326
  Receipt Date: 20150807
  Transmission Date: 20151125
  Serious: Yes (Death, Hospitalization, Other)
  Sender: FDA-Public Use
  Company Number: ADR-2015-00578

PATIENT
  Age: 76 Year
  Sex: Male

DRUGS (6)
  1. BACLOFEN. [Suspect]
     Active Substance: BACLOFEN
     Indication: HICCUPS
     Dosage: 5MG EVERY 8 HRS PRN
  2. OMEPRAZOLE. [Suspect]
     Active Substance: OMEPRAZOLE
  3. METOCLOPRAMIDE. [Suspect]
     Active Substance: METOCLOPRAMIDE
     Dosage: 10MG QD, AS NEEDED
  4. DONEPEZIL. [Suspect]
     Active Substance: DONEPEZIL
     Indication: COGNITIVE DISORDER
  5. HALOPERIDOL. [Suspect]
     Active Substance: HALOPERIDOL
  6. MEMANTINE HYDROCHLORIDE [Suspect]
     Active Substance: MEMANTINE HYDROCHLORIDE

REACTIONS (21)
  - Pleural effusion [None]
  - Eructation [None]
  - Abdominal pain upper [None]
  - Acute kidney injury [None]
  - Pulmonary fibrosis [None]
  - Asthenia [None]
  - Blood glucose increased [None]
  - Spinal compression fracture [None]
  - Urine ketone body present [None]
  - Sedation [None]
  - Hypotension [None]
  - Blood sodium increased [None]
  - Aggression [None]
  - Drug ineffective [None]
  - Condition aggravated [None]
  - Hiccups [None]
  - Hyporesponsive to stimuli [None]
  - Impulsive behaviour [None]
  - Urosepsis [None]
  - Cognitive disorder [None]
  - Tachycardia [None]

NARRATIVE: CASE EVENT DATE: 20150101
